FAERS Safety Report 7010791-1 (Version None)
Quarter: 2010Q3

REPORT INFORMATION
  Report Type: 
  Country: None (occurrence: None)
  Receive Date: 20100923
  Receipt Date: 20100916
  Transmission Date: 20110219
  Serious: Yes (Other)
  Sender: FDA-Public Use
  Company Number: US-PFIZER INC-2010079687

PATIENT
  Sex: Male

DRUGS (8)
  1. CHANTIX [Suspect]
     Indication: SMOKING CESSATION THERAPY
     Dosage: UNK
     Dates: start: 20080701, end: 20090806
  2. OXYCONTIN [Concomitant]
     Indication: BACK INJURY
     Dosage: UNK
     Dates: start: 20000201, end: 20100301
  3. PERCOCET [Concomitant]
     Indication: BACK INJURY
     Dosage: UNK
     Dates: start: 20050201, end: 20100301
  4. DIAZEPAM [Concomitant]
     Indication: ANXIETY
     Dosage: UNK
     Dates: start: 20010101
  5. DIAZEPAM [Concomitant]
     Indication: PAIN
  6. DIAZEPAM [Concomitant]
     Indication: SLEEP DISORDER
  7. KLOR-CON [Concomitant]
     Indication: HYPOKALAEMIA
     Dosage: UNK
     Dates: start: 20060101
  8. QUININE [Concomitant]
     Indication: MUSCLE SPASMS
     Dosage: UNK
     Dates: start: 20060101

REACTIONS (4)
  - ABNORMAL DREAMS [None]
  - ANXIETY [None]
  - DEPRESSION [None]
  - SUICIDAL IDEATION [None]
